FAERS Safety Report 7945897-3 (Version None)
Quarter: 2011Q4

REPORT INFORMATION
  Report Type: 
  Country: None (occurrence: None)
  Receive Date: 20111129
  Receipt Date: 20111117
  Transmission Date: 20120403
  Serious: Yes (Other)
  Sender: FDA-Public Use
  Company Number: MX-ROCHE-1014985

PATIENT
  Sex: Female
  Weight: 55 kg

DRUGS (2)
  1. CLONAZEPAM [Suspect]
     Indication: DEPRESSION
     Route: 048
     Dates: start: 20110315, end: 20111101
  2. SERTRALINE HYDROCHLORIDE [Concomitant]
     Indication: DEPRESSION
     Route: 048
     Dates: start: 20110315

REACTIONS (3)
  - DYSLALIA [None]
  - SOMNOLENCE [None]
  - ATAXIA [None]
